FAERS Safety Report 6427130-7 (Version None)
Quarter: 2009Q4

REPORT INFORMATION
  Report Type: 
  Country: None (occurrence: None)
  Receive Date: 20091104
  Receipt Date: 20091029
  Transmission Date: 20100525
  Serious: Yes (Other)
  Sender: FDA-Public Use
  Company Number: IT-SANOFI-SYNTHELABO-A06200900552

PATIENT

DRUGS (2)
  1. XELODA [Concomitant]
     Indication: COLON CANCER STAGE IV
     Route: 048
  2. ELOXATIN [Suspect]
     Indication: COLON CANCER STAGE IV
     Route: 041
     Dates: start: 20090427, end: 20090427

REACTIONS (1)
  - LARYNGOSPASM [None]
